FAERS Safety Report 9468220 (Version 2)
Quarter: 2013Q3

REPORT INFORMATION
  Report Type: Report from Study
  Country: IT (occurrence: IT)
  Receive Date: 20130821
  Receipt Date: 20130826
  Transmission Date: 20140515
  Serious: Yes (Death)
  Sender: FDA-Public Use
  Company Number: IT-SANOFI-AVENTIS-2013SA083698

PATIENT
  Sex: 0

DRUGS (6)
  1. FLUOROURACIL [Suspect]
     Indication: COLORECTAL CANCER METASTATIC
     Dosage: 48 HOUR CONTINUOUS INFUSION STARTING ON DAY 1, ADMINISTERED EVERY 2 WEEKS
     Route: 042
  2. FLUOROURACIL [Suspect]
     Indication: COLORECTAL CANCER METASTATIC
     Dosage: CYCLIC
     Route: 042
  3. OXALIPLATIN [Suspect]
     Indication: COLORECTAL CANCER METASTATIC
     Dosage: OVER 2 HOUR THROUGH Y-CONNECTOR ADMINISTERED ON DAY 1
     Route: 042
  4. IRINOTECAN [Suspect]
     Indication: COLORECTAL CANCER METASTATIC
     Dosage: OVER 1 HOUR, ADMINISTERED ON DAY 1
     Route: 042
  5. FOLINIC ACID [Suspect]
     Indication: COLORECTAL CANCER METASTATIC
     Dosage: OVER 2 HOUR THROUGH Y-CONNECTOR ADMINISTERED ON DAY 1
     Route: 042
  6. PANITUMUMAB [Suspect]
     Indication: COLORECTAL CANCER METASTATIC
     Dosage: OVER 1 HOUR, ADMINISTERED ON DAY 1
     Route: 042

REACTIONS (1)
  - Sudden cardiac death [Fatal]
